FAERS Safety Report 21251833 (Version 1)
Quarter: 2022Q3

REPORT INFORMATION
  Report Type: Spontaneous
  Country: GB (occurrence: GB)
  Receive Date: 20220825
  Receipt Date: 20220825
  Transmission Date: 20221027
  Serious: Yes (Death, Other)
  Sender: FDA-Public Use
  Company Number: None

PATIENT
  Sex: Male

DRUGS (3)
  1. METRONIDAZOLE [Suspect]
     Active Substance: METRONIDAZOLE
     Indication: Abdominal sepsis
     Route: 065
  2. CIPROFLOXACIN [Suspect]
     Active Substance: CIPROFLOXACIN
     Indication: Abdominal sepsis
     Route: 065
  3. TEICOPLANIN [Suspect]
     Active Substance: TEICOPLANIN
     Indication: Abdominal sepsis
     Route: 065

REACTIONS (1)
  - Foetal cardiac arrest [Fatal]
